FAERS Safety Report 15049356 (Version 5)
Quarter: 2018Q3

REPORT INFORMATION
  Report Type: Report from Study
  Country: DE (occurrence: DE)
  Receive Date: 20180622
  Receipt Date: 20180914
  Transmission Date: 20181010
  Serious: Yes (Death, Hospitalization, Other)
  Sender: FDA-Public Use
  Company Number: DE-BRISTOL-MYERS SQUIBB COMPANY-BMS-2018-057483

PATIENT
  Age: 77 Year
  Sex: Male

DRUGS (8)
  1. DEXAMETHASON                       /00016001/ [Concomitant]
     Active Substance: DEXAMETHASONE
     Indication: PROPHYLAXIS
     Dosage: 4 MG, UNK
     Route: 065
     Dates: start: 20170930
  2. NOVAMINSULFON [Concomitant]
     Active Substance: METAMIZOLE
     Indication: MALIGNANT NEOPLASM PROGRESSION
     Dosage: 1 DF, UNK
     Route: 065
  3. NIVOLUMAB [Suspect]
     Active Substance: NIVOLUMAB
     Indication: NON-SMALL CELL LUNG CANCER
     Dosage: 240 MG, UNK
     Route: 042
     Dates: start: 20170914, end: 20171208
  4. CANDESARTAN. [Concomitant]
     Active Substance: CANDESARTAN
     Indication: CARDIOVASCULAR DISORDER
     Dosage: 8 MG, UNK
     Route: 065
  5. TAMSULOSIN [Concomitant]
     Active Substance: TAMSULOSIN
     Indication: PRODUCT USED FOR UNKNOWN INDICATION
     Dosage: 0.4 MG, UNK
     Route: 065
  6. CLEXANE DUO [Concomitant]
     Indication: PROPHYLAXIS
     Dosage: 0.8 ML, UNK
     Route: 065
  7. INSUMAN RAPID [Concomitant]
     Active Substance: INSULIN HUMAN
     Indication: METABOLIC DISORDER
     Dosage: 1 DF, UNK
     Route: 065
  8. M?LONG [Concomitant]
     Indication: MALIGNANT NEOPLASM PROGRESSION
     Dosage: 20 MG, UNK
     Route: 065
     Dates: start: 20171017

REACTIONS (5)
  - Dizziness [Unknown]
  - Malignant neoplasm progression [Not Recovered/Not Resolved]
  - Asthenia [Unknown]
  - Pulmonary sepsis [Fatal]
  - Fall [Unknown]

NARRATIVE: CASE EVENT DATE: 20170929
